FAERS Safety Report 15633155 (Version 4)
Quarter: 2019Q2

REPORT INFORMATION
  Report Type: Spontaneous
  Country: US (occurrence: US)
  Receive Date: 20181119
  Receipt Date: 20190429
  Transmission Date: 20190711
  Serious: Yes (Other)
  Sender: FDA-Public Use
  Company Number: US-PRINSTON PHARMACEUTICAL INC.-2018PRN01588

PATIENT
  Age: 79 Year
  Sex: Female
  Weight: 68.03 kg

DRUGS (4)
  1. MAGNESIUM [Concomitant]
     Active Substance: MAGNESIUM
  2. POTASSIUM [Concomitant]
     Active Substance: POTASSIUM
  3. VALSARTAN. [Suspect]
     Active Substance: VALSARTAN
     Indication: HYPERTENSION
     Dosage: 80 MG, 1X/DAY
     Route: 048
     Dates: start: 2014, end: 201810
  4. ASPIRIN. [Concomitant]
     Active Substance: ASPIRIN
     Dosage: 81 MG, 1X/DAY

REACTIONS (12)
  - Skin discolouration [Unknown]
  - Dysarthria [Not Recovered/Not Resolved]
  - Recalled product administered [Recovered/Resolved]
  - Cerebrovascular accident [Not Recovered/Not Resolved]
  - Memory impairment [Not Recovered/Not Resolved]
  - Neoplasm malignant [Recovering/Resolving]
  - Pneumonia [Unknown]
  - Pneumothorax [Unknown]
  - Hypogammaglobulinaemia [Not Recovered/Not Resolved]
  - Abdominal neoplasm [Unknown]
  - Blood pressure increased [Recovering/Resolving]
  - Immune system disorder [Not Recovered/Not Resolved]

NARRATIVE: CASE EVENT DATE: 201512
